FAERS Safety Report 17636107 (Version 1)
Quarter: 2020Q2

REPORT INFORMATION
  Report Type: Spontaneous
  Country: FR (occurrence: FR)
  Receive Date: 20200407
  Receipt Date: 20200407
  Transmission Date: 20200713
  Serious: Yes (Hospitalization)
  Sender: FDA-Public Use
  Company Number: FR-TEVA-2020-FR-1220264

PATIENT
  Age: 58 Year
  Sex: Female
  Weight: 55 kg

DRUGS (15)
  1. PREDNISONE. [Suspect]
     Active Substance: PREDNISONE
     Indication: RETROPERITONEAL FIBROSIS
     Dosage: 40 MILLIGRAM
     Route: 048
     Dates: start: 20190828
  2. PRAVASTATINE SODIQUE [Concomitant]
     Active Substance: PRAVASTATIN SODIUM
  3. IBUPROFENE [Concomitant]
     Active Substance: IBUPROFEN
  4. CELLCEPT [Suspect]
     Active Substance: MYCOPHENOLATE MOFETIL\MYCOPHENOLATE MOFETIL HYDROCHLORIDE
     Indication: RETROPERITONEAL FIBROSIS
     Route: 048
     Dates: start: 20190828
  5. DAFALGAN [Concomitant]
     Active Substance: ACETAMINOPHEN
  6. CALTRATE [Concomitant]
     Active Substance: CALCIUM CARBONATE
  7. SERESTA [Concomitant]
     Active Substance: OXAZEPAM
  8. UVEDOSE [Concomitant]
     Active Substance: CHOLECALCIFEROL
  9. NOVORAPID [Concomitant]
     Active Substance: INSULIN ASPART
  10. LOPERAMIDE (CHLORHYDRATE DE) [Concomitant]
     Active Substance: LOPERAMIDE
  11. DIFFU K, G?LULE [Concomitant]
     Active Substance: POTASSIUM CHLORIDE
  12. INEXIUM [Concomitant]
     Active Substance: ESOMEPRAZOLE
  13. CLOPIDOGREL (CHLORHYDRATE DE) [Concomitant]
     Active Substance: CLOPIDOGREL HYDROCHLORIDE
  14. CREON [Concomitant]
     Active Substance: PANCRELIPASE AMYLASE\PANCRELIPASE LIPASE\PANCRELIPASE PROTEASE
  15. METEOSPASMYL [Concomitant]

REACTIONS (1)
  - Diabetes mellitus inadequate control [Recovered/Resolved]

NARRATIVE: CASE EVENT DATE: 201909
